FAERS Safety Report 19856213 (Version 1)
Quarter: 2021Q3

REPORT INFORMATION
  Report Type: Spontaneous
  Country: DE (occurrence: DE)
  Receive Date: 20210920
  Receipt Date: 20210920
  Transmission Date: 20211014
  Serious: Yes (Death, Hospitalization)
  Sender: FDA-Public Use
  Company Number: DE-TEVA-2021-DE-1952776

PATIENT
  Age: 71 Year
  Sex: Female

DRUGS (8)
  1. COLECALCIFEROL (VITAMIN D)/NATRIUMFLUORID [Concomitant]
     Dosage: 20000 IU, SCHEME
  2. PREDNISOLON [Suspect]
     Active Substance: PREDNISOLONE
     Dosage: 20 MILLIGRAM DAILY; 1?1?0?0
     Route: 065
  3. FORMOTEROL [Concomitant]
     Active Substance: FORMOTEROL
     Dosage: 19.66 MICROGRAM DAILY; 1?0?1?0
  4. ANASTROZOL [Concomitant]
     Active Substance: ANASTROZOLE
     Dosage: 1 DOSAGE FORMS DAILY; 1?0?0?0
  5. FENOTEROL [Concomitant]
     Active Substance: FENOTEROL
     Dosage: 8 DOSAGE FORMS DAILY; 100 MCG, 2?2?2?2
  6. TORASEMID [Concomitant]
     Active Substance: TORSEMIDE
     Dosage: .5 DOSAGE FORMS DAILY; 10 MG, 0.5?0?0?0
  7. PANTOPRAZOL [Concomitant]
     Active Substance: PANTOPRAZOLE SODIUM
     Dosage: 40 MILLIGRAM DAILY; 1?0?0?0
  8. OPIPRAMOL [Concomitant]
     Active Substance: OPIPRAMOL
     Dosage: 100 MILLIGRAM DAILY; 1?1?0?0

REACTIONS (11)
  - Tachycardia [Unknown]
  - Oedema peripheral [Unknown]
  - Electrocardiogram abnormal [Unknown]
  - Dyspnoea [Unknown]
  - Condition aggravated [Unknown]
  - Anaemia [Unknown]
  - Loss of consciousness [Unknown]
  - Acute respiratory failure [Unknown]
  - Systemic infection [Unknown]
  - Cyanosis [Unknown]
  - Tachypnoea [Unknown]
